FAERS Safety Report 9580740 (Version 3)
Quarter: 2013Q4

REPORT INFORMATION
  Report Type: Spontaneous
  Country: IT (occurrence: IT)
  Receive Date: 20131002
  Receipt Date: 20131119
  Transmission Date: 20140711
  Serious: Yes (Life-Threatening)
  Sender: FDA-Public Use
  Company Number: IT-SA-2013SA094588

PATIENT
  Age: 40 Year
  Sex: Male

DRUGS (5)
  1. PLAVIX [Suspect]
     Indication: ACUTE CORONARY SYNDROME
     Route: 048
     Dates: start: 20130917, end: 20130917
  2. FLECTADOL [Interacting]
     Indication: ACUTE CORONARY SYNDROME
     Route: 042
     Dates: start: 20130917, end: 20130917
  3. AGGRASTAT [Interacting]
     Indication: ACUTE CORONARY SYNDROME
     Route: 042
     Dates: start: 20130917, end: 20130917
  4. ANGIOX [Concomitant]
     Indication: ACUTE CORONARY SYNDROME
     Dosage: FORM: VIALS; STRENGTH: 250 MG
     Route: 042
     Dates: start: 20130917, end: 20130917
  5. ARTROSILENE [Concomitant]
     Dosage: STRENGTH: 160 MG/2 ML
     Route: 042
     Dates: start: 20130917, end: 20130917

REACTIONS (3)
  - Chills [Recovering/Resolving]
  - Drug interaction [Unknown]
  - Thrombocytopenia [Recovering/Resolving]
